FAERS Safety Report 4446979-3 (Version None)
Quarter: 2004Q3

REPORT INFORMATION
  Report Type: 
  Country: None (occurrence: None)
  Receive Date: 20040812
  Receipt Date: 20040420
  Transmission Date: 20050211
  Serious: No
  Sender: FDA-Public Use
  Company Number: USA040465130

PATIENT
  Age: 72 Year
  Sex: Female
  Weight: 102 kg

DRUGS (6)
  1. CIALIS [Suspect]
     Dosage: 20 MG
     Dates: start: 20040401, end: 20040401
  2. LIPITOR [Concomitant]
  3. TOPAMAX [Concomitant]
  4. ZOLOFT [Concomitant]
  5. TAMSULOSIN HYDROCHLORIDE [Concomitant]
  6. OXYCODONE HYDROCHLORIDE W/PARACETAMOL [Concomitant]

REACTIONS (3)
  - DRY MOUTH [None]
  - DYSPHAGIA [None]
  - TONGUE DISORDER [None]
